FAERS Safety Report 10222038 (Version 1)
Quarter: 2014Q2

REPORT INFORMATION
  Report Type: Spontaneous
  Country: US (occurrence: None)
  Receive Date: 20140606
  Receipt Date: 20140606
  Transmission Date: 20141212
  Serious: Yes (Hospitalization, Other)
  Sender: FDA-Public Use
  Company Number: None

PATIENT
  Age: 43 Year
  Sex: Female
  Weight: 61.69 kg

DRUGS (13)
  1. ACETAMINOPHEN [Suspect]
     Indication: DRUG THERAPY
     Dosage: 2 , OTHER
     Route: 048
     Dates: start: 20140501, end: 20140527
  2. ACETAMINOPHEN [Suspect]
     Indication: JOINT SWELLING
     Dosage: 2 , OTHER
     Route: 048
     Dates: start: 20140501, end: 20140527
  3. AZITHROMYCIN [Suspect]
     Indication: DYSPHONIA
     Dosage: 2 PILLS
     Route: 048
     Dates: start: 20140527
  4. AZITHROMYCIN [Suspect]
     Indication: DRY MOUTH
     Dosage: 2 PILLS
     Route: 048
     Dates: start: 20140527
  5. TYLENOL 500 MG [Concomitant]
  6. ADIPEX [Concomitant]
  7. AZYTHROMYCIN [Concomitant]
  8. ZOLOFT [Concomitant]
  9. CONSTIPATION MEDS [Concomitant]
  10. TEC [Concomitant]
  11. BIOTIN [Concomitant]
  12. HAIR AND NAIL PILLS [Concomitant]
  13. BENADRYL [Concomitant]

REACTIONS (2)
  - Overdose [None]
  - Palpitations [None]
